FAERS Safety Report 10889720 (Version 1)
Quarter: 2015Q1

REPORT INFORMATION
  Report Type: Spontaneous
  Country: US (occurrence: US)
  Receive Date: 20150306
  Receipt Date: 20150306
  Transmission Date: 20150721
  Serious: Yes (Life-Threatening, Hospitalization, Disabling, Other)
  Sender: FDA-Public Use
  Company Number: US-009507513-1503USA002151

PATIENT
  Age: 76 Year
  Sex: Male

DRUGS (3)
  1. ZEMURON [Suspect]
     Active Substance: ROCURONIUM BROMIDE
     Dosage: 20 MG, ONCE
     Route: 042
  2. ZEMURON [Suspect]
     Active Substance: ROCURONIUM BROMIDE
     Dosage: 10 MG, ONCE
     Route: 042
  3. NEOSTIGMINE METHYLSULFATE. [Concomitant]
     Active Substance: NEOSTIGMINE METHYLSULFATE
     Indication: NEUROMUSCULAR BLOCKADE REVERSAL

REACTIONS (1)
  - Neuromuscular block prolonged [Recovered/Resolved]
